FAERS Safety Report 8401702-2 (Version None)
Quarter: 2012Q2

REPORT INFORMATION
  Report Type: 
  Country: None (occurrence: None)
  Receive Date: 20120601
  Receipt Date: 20120523
  Transmission Date: 20120825
  Serious: Yes (Death, Life-Threatening, Other)
  Sender: FDA-Public Use
  Company Number: JP-GENZYME-THYM-1002556

PATIENT
  Sex: Male
  Weight: 41 kg

DRUGS (135)
  1. TACROLIMUS [Suspect]
     Indication: PROPHYLAXIS AGAINST GRAFT VERSUS HOST DISEASE
     Dosage: UNK
     Route: 065
     Dates: start: 20100517, end: 20100715
  2. GLUTATHIONE [Concomitant]
     Indication: PROPHYLAXIS
     Dosage: UNK
     Route: 065
     Dates: start: 20100413, end: 20100609
  3. MICAFUNGIN SODIUM [Concomitant]
     Indication: INFECTION PROPHYLAXIS
     Dosage: UNK
     Route: 065
     Dates: start: 20100413, end: 20100423
  4. METHYLPREDNISOLONE SODIUM SUCCINATE [Concomitant]
     Indication: PREMEDICATION
     Dosage: UNK
     Route: 065
     Dates: start: 20101103, end: 20101104
  5. MEROPENEM [Concomitant]
     Dosage: UNK
     Route: 065
     Dates: start: 20101028, end: 20101214
  6. VANCOMYCIN HYDROCHLORIDE [Concomitant]
     Indication: INFECTION PROPHYLAXIS
     Dosage: UNK
     Route: 065
     Dates: start: 20100426, end: 20100509
  7. PENTAMIDINE ISETHIONATE [Concomitant]
     Dosage: UNK
     Route: 065
     Dates: start: 20100709, end: 20100709
  8. URSODIOL [Concomitant]
     Dosage: UNK
     Route: 065
     Dates: start: 20101028, end: 20110225
  9. IRRADIATED PLATELET CONCENTRATE [Concomitant]
     Dosage: 10 U, UNK
     Route: 065
     Dates: start: 20100908, end: 20100915
  10. IRRADIATED ERYTHROCYTE CONCENTRATE [Concomitant]
     Dosage: 2 U, UNK
     Route: 065
     Dates: start: 20101005, end: 20101005
  11. UNKNOWN DRUG [Concomitant]
     Indication: PNEUMONIA
     Dosage: UNK
     Route: 065
     Dates: start: 20101029, end: 20101112
  12. THYMOGLOBULIN [Suspect]
     Indication: BONE MARROW CONDITIONING REGIMEN
     Dosage: 55 MG, QD
     Route: 042
     Dates: start: 20100420, end: 20100421
  13. ETOPOSIDE [Concomitant]
     Indication: BONE MARROW CONDITIONING REGIMEN
     Dosage: UNK
     Route: 065
     Dates: start: 20101030, end: 20101030
  14. BUSULFAN [Concomitant]
     Indication: BONE MARROW CONDITIONING REGIMEN
     Dosage: UNK
     Route: 065
     Dates: start: 20100413, end: 20100417
  15. GRANISETRON HYDROCHLORIDE [Concomitant]
     Dosage: UNK
     Route: 065
     Dates: start: 20100908, end: 20100923
  16. GRANISETRON HYDROCHLORIDE [Concomitant]
     Dosage: UNK
     Route: 065
     Dates: start: 20101001
  17. STRONGER NEO MINOPHAGEN C [Concomitant]
     Indication: PROPHYLAXIS
     Dosage: UNK
     Route: 065
     Dates: start: 20100413, end: 20100609
  18. MICAFUNGIN SODIUM [Concomitant]
     Indication: PNEUMONIA
     Dosage: UNK
     Route: 065
     Dates: start: 20101028, end: 20101213
  19. ACETAZOLAMIDE SODIUM [Concomitant]
     Indication: PROPHYLAXIS
     Dosage: UNK
     Route: 065
     Dates: start: 20100908, end: 20100913
  20. MELPHALAN HYDROCHLORIDE [Concomitant]
     Indication: BONE MARROW CONDITIONING REGIMEN
     Dosage: UNK
     Route: 065
     Dates: start: 20100419, end: 20100420
  21. MEROPENEM [Concomitant]
     Indication: INFECTION PROPHYLAXIS
     Dosage: UNK
     Route: 065
     Dates: start: 20100421, end: 20100504
  22. FILGRASTIM [Concomitant]
     Indication: PROPHYLAXIS
     Dosage: UNK
     Route: 065
     Dates: start: 20100423, end: 20100507
  23. PENTAMIDINE ISETHIONATE [Concomitant]
     Indication: ANTIFUNGAL PROPHYLAXIS
     Dosage: UNK
     Route: 065
     Dates: start: 20100506, end: 20100506
  24. PENTAMIDINE ISETHIONATE [Concomitant]
     Dosage: UNK
     Route: 065
     Dates: start: 20100603, end: 20100603
  25. CARBENIN [Concomitant]
     Dosage: UNK
     Route: 065
     Dates: start: 20101202, end: 20101207
  26. IRRADIATED ERYTHROCYTE CONCENTRATE [Concomitant]
     Dosage: 2 U, UNK
     Route: 065
     Dates: start: 20101022, end: 20101022
  27. HUMAN RED BLOOD CELLS [Concomitant]
     Dosage: UNK
     Route: 065
     Dates: start: 20101111, end: 20101111
  28. SODIUM ALGINATE [Concomitant]
     Indication: PROPHYLAXIS AGAINST GASTROINTESTINAL ULCER
     Dosage: UNK
     Route: 065
     Dates: start: 20101028, end: 20101218
  29. THYMOGLOBULIN [Suspect]
     Dosage: 56 MG, QD
     Route: 042
     Dates: start: 20101103, end: 20101104
  30. CYTARABINE [Concomitant]
     Indication: ACUTE LYMPHOCYTIC LEUKAEMIA
     Dosage: UNK
     Route: 065
     Dates: start: 20100325, end: 20100412
  31. CYTARABINE [Concomitant]
     Indication: BONE MARROW TRANSPLANT
     Dosage: UNK
     Route: 065
     Dates: start: 20100417, end: 20100418
  32. FAMOTIDINE [Concomitant]
     Indication: PROPHYLAXIS
     Dosage: UNK
     Route: 065
     Dates: start: 20100413, end: 20100519
  33. FAMOTIDINE [Concomitant]
     Dosage: UNK
     Route: 065
     Dates: start: 20110131, end: 20110313
  34. IMIPEM [Concomitant]
     Indication: INFECTION PROPHYLAXIS
     Dosage: UNK
     Route: 065
     Dates: start: 20100413, end: 20100421
  35. IMIPEM [Concomitant]
     Dosage: UNK
     Route: 065
     Dates: start: 20100505, end: 20100514
  36. HYDROCORTISONE SODIUM SUCCINATE [Concomitant]
     Indication: PROPHYLAXIS OF NAUSEA AND VOMITING
     Dosage: UNK
     Route: 065
     Dates: start: 20100413, end: 20100424
  37. MINOCYCLINE HYDROCHLORIDE [Concomitant]
     Indication: INFECTION PROPHYLAXIS
     Dosage: UNK
     Route: 065
     Dates: start: 20100418, end: 20100506
  38. MEROPENEM [Concomitant]
     Indication: PNEUMONIA
     Dosage: UNK
     Route: 065
     Dates: start: 20101119
  39. ACYCLOVIR [Concomitant]
     Dosage: UNK
     Route: 065
     Dates: start: 20101028, end: 20101202
  40. METHOTREXATE [Concomitant]
     Indication: PROPHYLAXIS AGAINST GRAFT VERSUS HOST DISEASE
     Dosage: UNK
     Route: 065
     Dates: start: 20100423, end: 20100423
  41. METHOTREXATE [Concomitant]
     Dosage: UNK
     Route: 065
     Dates: start: 20100424, end: 20100424
  42. METHOTREXATE [Concomitant]
     Dosage: UNK
     Route: 065
     Dates: start: 20101108, end: 20101108
  43. PENTAMIDINE ISETHIONATE [Concomitant]
     Dosage: UNK
     Route: 065
     Dates: start: 20100928, end: 20100928
  44. ETHYL ICOSAPENTATE [Concomitant]
     Dosage: UNK
     Route: 065
     Dates: start: 20101028, end: 20110225
  45. IRRADIATED ERYTHROCYTE CONCENTRATE [Concomitant]
     Dosage: 2 U, UNK
     Route: 065
     Dates: start: 20100928, end: 20100928
  46. PLATELETS [Concomitant]
     Indication: ACUTE LYMPHOCYTIC LEUKAEMIA
     Dosage: UNK
     Route: 065
     Dates: start: 20101029, end: 20101130
  47. HUMAN RED BLOOD CELLS [Concomitant]
     Indication: ACUTE LYMPHOCYTIC LEUKAEMIA
     Dosage: UNK
     Route: 065
     Dates: start: 20101101, end: 20101101
  48. GLYCYRON [Concomitant]
     Indication: PROPHYLAXIS
     Dosage: UNK
     Route: 065
     Dates: start: 20110226, end: 20110317
  49. TACROLIMUS [Suspect]
     Indication: GRAFT VERSUS HOST DISEASE
     Dosage: UNK
     Route: 065
     Dates: start: 20100421, end: 20100516
  50. TACROLIMUS [Suspect]
     Dosage: UNK
     Route: 065
     Dates: start: 20101130
  51. FAMOTIDINE [Concomitant]
     Dosage: UNK
     Route: 065
     Dates: start: 20101028, end: 20101214
  52. TEICOPLANIN [Concomitant]
     Indication: INFECTION PROPHYLAXIS
     Dosage: UNK
     Route: 065
     Dates: start: 20100413, end: 20100426
  53. GRANISETRON HYDROCHLORIDE [Concomitant]
     Dosage: UNK
     Route: 065
     Dates: start: 20101028, end: 20101115
  54. SODIUM BICARBONATE [Concomitant]
     Dosage: UNK
     Route: 065
     Dates: start: 20100907, end: 20100913
  55. ACETAZOLAMIDE SODIUM [Concomitant]
     Indication: INFECTION PROPHYLAXIS
     Dosage: UNK
     Route: 065
     Dates: start: 20100416, end: 20100419
  56. FILGRASTIM [Concomitant]
     Dosage: UNK
     Route: 065
     Dates: start: 20101028, end: 20101119
  57. VORICONAZOLE [Concomitant]
     Indication: PNEUMONIA
     Dosage: UNK
     Route: 065
     Dates: start: 20100507, end: 20101015
  58. PENTAMIDINE ISETHIONATE [Concomitant]
     Dosage: UNK
     Route: 065
     Dates: start: 20100805, end: 20100805
  59. POLYMYXIN B SULFATE [Concomitant]
     Indication: PRODUCT USED FOR UNKNOWN INDICATION
     Dosage: UNK
     Route: 065
     Dates: start: 20101028, end: 20101119
  60. IRRADIATED PLATELET CONCENTRATE [Concomitant]
     Dosage: 10 U, UNK
     Route: 065
     Dates: start: 20100421, end: 20100427
  61. IRRADIATED PLATELET CONCENTRATE [Concomitant]
     Dosage: 10 U, UNK
     Route: 065
     Dates: start: 20100505, end: 20100511
  62. IRRADIATED ERYTHROCYTE CONCENTRATE [Concomitant]
     Dosage: 2 U, UNK
     Route: 065
     Dates: start: 20100420, end: 20100420
  63. AMINO ACIDS NOS W [Concomitant]
     Indication: MEDICAL DIET
     Dosage: UNK
     Route: 065
     Dates: start: 20101107, end: 20101128
  64. CEFOZOPRAN HYDROCHLORIDE [Concomitant]
     Indication: INFECTION PROPHYLAXIS
     Dosage: UNK
     Route: 065
     Dates: start: 20101117, end: 20101119
  65. SPIRONOLACTONE [Concomitant]
     Indication: PROPHYLAXIS
     Dosage: UNK
     Route: 065
     Dates: start: 20101028, end: 20101030
  66. LOPERAMIDE HCL [Concomitant]
     Indication: BONE MARROW CONDITIONING REGIMEN
     Dosage: UNK
     Route: 065
     Dates: start: 20101102, end: 20110311
  67. PREDNISOLONE [Suspect]
     Dosage: UNK
     Route: 065
     Dates: start: 20100521, end: 20100625
  68. STRONGER NEO MINOPHAGEN C [Concomitant]
     Dosage: UNK
     Route: 065
     Dates: start: 20101001
  69. STRONGER NEO MINOPHAGEN C [Concomitant]
     Dosage: UNK
     Route: 065
     Dates: start: 20101028, end: 20101214
  70. GLUTATHIONE [Concomitant]
     Dosage: UNK
     Route: 065
     Dates: start: 20101001
  71. DALTEPARIN SODIUM [Concomitant]
     Indication: ANTICOAGULANT THERAPY
     Dosage: UNK
     Route: 065
     Dates: start: 20100413, end: 20100526
  72. FUROSEMIDE [Concomitant]
     Indication: PROPHYLAXIS
     Dosage: UNK
     Route: 065
     Dates: start: 20100414, end: 20100503
  73. FUROSEMIDE [Concomitant]
     Dosage: UNK
     Route: 065
     Dates: start: 20101028, end: 20101122
  74. PREDNISOLONE SODIUM SUCCINATE [Concomitant]
     Indication: CAPILLARY LEAK SYNDROME
     Dosage: UNK
     Route: 065
     Dates: start: 20100530, end: 20100603
  75. METHOTREXATE [Concomitant]
     Dosage: UNK
     Route: 065
     Dates: start: 20101106, end: 20101106
  76. VORICONAZOLE [Concomitant]
     Indication: INFECTION PROPHYLAXIS
     Dosage: UNK
     Route: 065
     Dates: start: 20100424, end: 20100506
  77. VORICONAZOLE [Concomitant]
     Dosage: UNK
     Route: 065
     Dates: start: 20101119
  78. VANCOMYCIN HYDROCHLORIDE [Concomitant]
     Indication: PNEUMONIA
     Dosage: UNK
     Route: 065
     Dates: start: 20100413, end: 20100514
  79. ETHYL ICOSAPENTATE [Concomitant]
     Indication: PROPHYLAXIS
     Dosage: UNK
     Route: 065
     Dates: start: 20100413, end: 20100709
  80. IRRADIATED PLATELET CONCENTRATE [Concomitant]
     Dosage: 10 U, UNK
     Route: 065
     Dates: start: 20100520, end: 20100520
  81. IRRADIATED ERYTHROCYTE CONCENTRATE [Concomitant]
     Dosage: 2 U, UNK
     Route: 065
     Dates: start: 20100504, end: 20100504
  82. IRRADIATED ERYTHROCYTE CONCENTRATE [Concomitant]
     Dosage: 2 U, UNK
     Route: 065
     Dates: start: 20101014, end: 20101014
  83. HYDROXYZINE HYDROCHLORIDE [Concomitant]
     Indication: PREMEDICATION
     Dosage: UNK
     Dates: start: 20101103, end: 20101104
  84. CIPROFLOXACIN [Concomitant]
     Indication: INFECTION PROPHYLAXIS
     Dosage: UNK
     Route: 065
     Dates: start: 20101119, end: 20101201
  85. POLAPREZINC [Concomitant]
     Indication: PROPHYLAXIS AGAINST GASTROINTESTINAL ULCER
     Dosage: UNK
     Route: 065
     Dates: start: 20101106, end: 20101124
  86. TACROLIMUS [Suspect]
     Dosage: UNK
     Route: 065
     Dates: start: 20101107, end: 20101129
  87. FLUDARA [Concomitant]
     Indication: BONE MARROW CONDITIONING REGIMEN
     Dosage: UNK
     Route: 065
     Dates: start: 20101031, end: 20101104
  88. FAMOTIDINE [Concomitant]
     Dosage: UNK
     Route: 065
     Dates: start: 20100521
  89. GLUTATHIONE [Concomitant]
     Dosage: UNK
     Route: 065
     Dates: start: 20100908, end: 20100924
  90. DALTEPARIN SODIUM [Concomitant]
     Dosage: UNK
     Route: 065
     Dates: start: 20101028, end: 20101207
  91. FUROSEMIDE [Concomitant]
     Dosage: UNK
     Route: 065
     Dates: start: 20100930, end: 20101006
  92. ACYCLOVIR [Concomitant]
     Indication: INFECTION PROPHYLAXIS
     Dosage: UNK
     Route: 065
     Dates: start: 20100423, end: 20100522
  93. METHOTREXATE [Concomitant]
     Dosage: UNK
     Route: 065
     Dates: start: 20100428, end: 20100428
  94. METHOTREXATE [Concomitant]
     Dosage: UNK
     Route: 065
     Dates: start: 20101111, end: 20101111
  95. URSODIOL [Concomitant]
     Indication: PROPHYLAXIS
     Dosage: UNK
     Route: 065
     Dates: start: 20100413, end: 20100805
  96. PHENYTOIN [Concomitant]
     Indication: CONVULSION PROPHYLAXIS
     Dosage: UNK
     Route: 065
     Dates: start: 20100414, end: 20100417
  97. IRRADIATED ERYTHROCYTE CONCENTRATE [Concomitant]
     Indication: ACUTE LYMPHOCYTIC LEUKAEMIA
     Dosage: 2 U, UNK
     Route: 065
     Dates: start: 20100416, end: 20100416
  98. IRRADIATED ERYTHROCYTE CONCENTRATE [Concomitant]
     Dosage: 2 U, UNK
     Route: 065
     Dates: start: 20100629, end: 20100629
  99. ETOPOSIDE [Concomitant]
     Indication: ACUTE LYMPHOCYTIC LEUKAEMIA
     Dosage: UNK
     Route: 065
     Dates: start: 20100325, end: 20100412
  100. TEICOPLANIN [Concomitant]
     Indication: PNEUMONIA
     Dosage: UNK
     Route: 065
     Dates: start: 20101028, end: 20101117
  101. HYDROCORTISONE SODIUM SUCCINATE [Concomitant]
     Indication: PREMEDICATION
     Dosage: UNK
     Route: 065
     Dates: start: 20101028, end: 20101119
  102. STRONGER NEO MINOPHAGEN C [Concomitant]
     Dosage: UNK
     Route: 065
     Dates: start: 20100908, end: 20100924
  103. GLUTATHIONE [Concomitant]
     Dosage: UNK
     Route: 065
     Dates: start: 20101028, end: 20101214
  104. SODIUM BICARBONATE [Concomitant]
     Indication: PROPHYLAXIS
     Dosage: UNK
     Route: 065
     Dates: start: 20100416, end: 20100419
  105. MELPHALAN HYDROCHLORIDE [Concomitant]
     Dosage: UNK
     Route: 065
     Dates: start: 20101101, end: 20101102
  106. PREDNISOLONE SODIUM SUCCINATE [Concomitant]
     Dosage: UNK
     Route: 065
     Dates: start: 20101125, end: 20101214
  107. CARBENIN [Concomitant]
     Indication: INFECTION PROPHYLAXIS
     Dosage: UNK
     Route: 065
     Dates: start: 20100907
  108. POLYMYXIN B SULFATE [Concomitant]
     Indication: INFECTION PROPHYLAXIS
     Dosage: UNK
     Route: 065
     Dates: start: 20100413, end: 20100521
  109. LEVOFLOXACIN [Concomitant]
     Indication: INFECTION PROPHYLAXIS
     Dosage: UNK
     Route: 065
     Dates: start: 20100621
  110. IRRADIATED PLATELET CONCENTRATE [Concomitant]
     Indication: ACUTE LYMPHOCYTIC LEUKAEMIA
     Dosage: 10 U, UNK
     Route: 065
     Dates: start: 20100414, end: 20100414
  111. IRRADIATED PLATELET CONCENTRATE [Concomitant]
     Dosage: 10 U, UNK
     Route: 065
     Dates: start: 20100429, end: 20100503
  112. IRRADIATED PLATELET CONCENTRATE [Concomitant]
     Dosage: 10 U, UNK
     Route: 065
     Dates: start: 20100513, end: 20100516
  113. IRRADIATED ERYTHROCYTE CONCENTRATE [Concomitant]
     Dosage: 2 U, UNK
     Route: 065
     Dates: start: 20100512, end: 20100512
  114. IRRADIATED ERYTHROCYTE CONCENTRATE [Concomitant]
     Dosage: 2 U, UNK
     Route: 065
     Dates: start: 20100918, end: 20100918
  115. ANTITHROMBIN III HUMAN [Concomitant]
     Indication: PROPHYLAXIS
     Dosage: UNK
     Route: 065
     Dates: start: 20101118, end: 20101120
  116. ANTITHROMBIN III HUMAN [Concomitant]
     Dosage: UNK
     Route: 065
     Dates: start: 20110217, end: 20110218
  117. DEXAMETHASONE [Concomitant]
     Indication: ACUTE LYMPHOCYTIC LEUKAEMIA
     Dosage: UNK
     Route: 065
     Dates: start: 20101031, end: 20101115
  118. PREDNISOLONE [Suspect]
     Indication: PROPHYLAXIS AGAINST GRAFT VERSUS HOST DISEASE
     Dosage: UNK
     Route: 065
     Dates: start: 20100521, end: 20100907
  119. GRANISETRON HYDROCHLORIDE [Concomitant]
     Indication: PROPHYLAXIS OF NAUSEA AND VOMITING
     Dosage: UNK
     Route: 065
     Dates: start: 20100413, end: 20100424
  120. METHYLPREDNISOLONE SODIUM SUCCINATE [Concomitant]
     Indication: ACUTE LYMPHOCYTIC LEUKAEMIA
     Dosage: UNK
     Route: 065
     Dates: start: 20100420, end: 20100421
  121. PREDNISOLONE SODIUM SUCCINATE [Concomitant]
     Indication: PROPHYLAXIS AGAINST GRAFT VERSUS HOST DISEASE
     Dosage: UNK
     Route: 065
     Dates: start: 20100422, end: 20100520
  122. VORICONAZOLE [Concomitant]
     Dosage: UNK
     Route: 065
     Dates: start: 20101028, end: 20101119
  123. VANCOMYCIN HYDROCHLORIDE [Concomitant]
     Dosage: UNK
     Route: 065
     Dates: start: 20101028, end: 20101119
  124. IRRADIATED PLATELET CONCENTRATE [Concomitant]
     Dosage: 10 U, UNK
     Route: 065
     Dates: start: 20100417, end: 20100419
  125. IRRADIATED PLATELET CONCENTRATE [Concomitant]
     Dosage: 10 U, UNK
     Route: 065
     Dates: start: 20100921, end: 20101021
  126. IRRADIATED ERYTHROCYTE CONCENTRATE [Concomitant]
     Dosage: 2 U, UNK
     Route: 065
     Dates: start: 20100428, end: 20100428
  127. ANTI-THYMOCYTE GLOBULIN EQUINE NOS [Concomitant]
     Indication: PREMEDICATION
     Dosage: UNK
     Route: 065
     Dates: start: 20101031
  128. REBAMIPIDE [Concomitant]
     Indication: PROPHYLAXIS AGAINST GASTROINTESTINAL ULCER
     Dosage: UNK
     Route: 065
     Dates: start: 20101028
  129. ACYCLOVIR [Concomitant]
     Dosage: UNK
     Route: 065
     Dates: start: 20101028, end: 20101202
  130. ASPARTATE POTASSIUM [Concomitant]
     Indication: MINERAL SUPPLEMENTATION
     Dosage: UNK
     Route: 065
     Dates: start: 20101028, end: 20101030
  131. PLATELETS [Concomitant]
     Indication: BONE MARROW CONDITIONING REGIMEN
  132. HUMAN RED BLOOD CELLS [Concomitant]
     Indication: BONE MARROW CONDITIONING REGIMEN
     Dosage: UNK
     Route: 065
     Dates: start: 20101110, end: 20101110
  133. HUMAN RED BLOOD CELLS [Concomitant]
     Dosage: UNK
     Route: 065
     Dates: start: 20101119, end: 20101119
  134. HUMAN RED BLOOD CELLS [Concomitant]
     Dosage: UNK
     Route: 065
     Dates: start: 20101127, end: 20101127
  135. PARENTERAL [Concomitant]
     Indication: MEDICAL DIET
     Dosage: UNK
     Route: 065
     Dates: start: 20110218, end: 20110303

REACTIONS (17)
  - CYSTITIS HAEMORRHAGIC [None]
  - TRANSIENT ISCHAEMIC ATTACK [None]
  - GASTRITIS [None]
  - DIARRHOEA [None]
  - CAPILLARY LEAK SYNDROME [None]
  - CHRONIC GRAFT VERSUS HOST DISEASE [None]
  - SEPTIC SHOCK [None]
  - ENGRAFT FAILURE [None]
  - STOMATITIS [None]
  - PYREXIA [None]
  - OBLITERATIVE BRONCHIOLITIS [None]
  - HEPATIC FUNCTION ABNORMAL [None]
  - HYPERTENSION [None]
  - HYPERTRIGLYCERIDAEMIA [None]
  - ACUTE LYMPHOCYTIC LEUKAEMIA RECURRENT [None]
  - GRAFT VERSUS HOST DISEASE IN INTESTINE [None]
  - GRAFT VERSUS HOST DISEASE IN SKIN [None]
